FAERS Safety Report 20311737 (Version 3)
Quarter: 2022Q2

REPORT INFORMATION
  Report Type: Spontaneous
  Country: US (occurrence: US)
  Receive Date: 20220108
  Receipt Date: 20220411
  Transmission Date: 20220721
  Serious: Yes (Hospitalization, Disabling, Other)
  Sender: FDA-Public Use
  Company Number: US-GLAXOSMITHKLINE-US2022AMR000334

PATIENT
  Sex: Female
  Weight: 56.236 kg

DRUGS (6)
  1. VALTREX [Suspect]
     Active Substance: VALACYCLOVIR HYDROCHLORIDE
     Indication: Product used for unknown indication
     Dosage: UNK
     Dates: end: 20031211
  2. ANECTINE [Suspect]
     Active Substance: SUCCINYLCHOLINE CHLORIDE
     Indication: Product used for unknown indication
     Dosage: UNK
  3. VALIUM [Suspect]
     Active Substance: DIAZEPAM
     Indication: Product used for unknown indication
     Dosage: UNK
  4. CODEINE [Suspect]
     Active Substance: CODEINE
     Indication: Product used for unknown indication
     Dosage: UNK
  5. KEFLEX [Suspect]
     Active Substance: CEPHALEXIN
     Indication: Product used for unknown indication
     Dosage: UNK
  6. FERROUS SULFATE ANHYDROUS [Suspect]
     Active Substance: FERROUS SULFATE ANHYDROUS
     Indication: Product used for unknown indication
     Dosage: UNK

REACTIONS (14)
  - Monoplegia [Recovered/Resolved]
  - Mast cell activation syndrome [Unknown]
  - Abortion spontaneous [Unknown]
  - Ear neoplasm [Recovered/Resolved]
  - Gait inability [Unknown]
  - Rash [Unknown]
  - Confusional state [Unknown]
  - Dysarthria [Unknown]
  - Sleep disorder [Unknown]
  - Dizziness [Unknown]
  - Swelling [Unknown]
  - Hypersensitivity [Unknown]
  - Pain [Unknown]
  - Drug hypersensitivity [Unknown]
